FAERS Safety Report 6762913-5 (Version None)
Quarter: 2010Q2

REPORT INFORMATION
  Report Type: 
  Country: None (occurrence: None)
  Receive Date: 20100609
  Receipt Date: 20100526
  Transmission Date: 20101027
  Serious: No
  Sender: FDA-Public Use
  Company Number: US-B.I. PHARMACEUTICALS,INC./RIDGEFIELD-2010-BP-05459BP

PATIENT
  Sex: Male

DRUGS (17)
  1. SPIRIVA [Suspect]
     Indication: CHRONIC OBSTRUCTIVE PULMONARY DISEASE
     Dosage: 18 MCG
     Route: 055
     Dates: start: 20090901
  2. LASIX [Concomitant]
     Indication: FLUID RETENTION
     Dosage: 40 MG
     Route: 048
  3. ALLOPURINOL [Concomitant]
     Indication: GOUT
     Dosage: 150 MG
     Route: 048
  4. ALPRAZOLAM [Concomitant]
     Dosage: 0.5 MG
  5. COZAAR [Concomitant]
  6. DILTIAZEM [Concomitant]
     Dosage: 24 HR CD ONE DAY
  7. DOCUSATE CALCIUM [Concomitant]
     Dosage: 720 MG
  8. ASPIRIN [Concomitant]
     Dosage: 325 MG
  9. MTV [Concomitant]
     Dosage: DAILY
  10. OMEPRAZOLE [Concomitant]
     Dosage: 40 MG
  11. PEFOROMIST [Concomitant]
     Dosage: 40 MG
  12. PREDNISONE [Concomitant]
     Dosage: 5 MG
  13. PULMICORT [Concomitant]
     Dosage: 5 MG
  14. RAPAFLO [Concomitant]
     Dosage: 8 MG
  15. SIMVASTATIN [Concomitant]
     Dosage: 20 MG
  16. SPIRIVA [Concomitant]
     Dosage: 18 MCG
     Route: 055
  17. VITAMIN D [Concomitant]
     Dosage: 1000 MG

REACTIONS (4)
  - DYSURIA [None]
  - FLUID RETENTION [None]
  - PRURITUS [None]
  - WEIGHT INCREASED [None]
